FAERS Safety Report 26106766 (Version 1)
Quarter: 2025Q4

REPORT INFORMATION
  Report Type: Spontaneous
  Country: CA (occurrence: CA)
  Receive Date: 20251201
  Receipt Date: 20251201
  Transmission Date: 20260117
  Serious: Yes (Other)
  Sender: ACCORD
  Company Number: CA-Accord-515499

PATIENT
  Age: 17 Year
  Sex: Female

DRUGS (1)
  1. HYDROXYCHLOROQUINE [Suspect]
     Active Substance: HYDROXYCHLOROQUINE
     Indication: Systemic lupus erythematosus
     Dosage: (CUMULATIVE 78 G)

REACTIONS (2)
  - Cardiomyopathy [Recovered/Resolved]
  - Cardiogenic shock [Recovered/Resolved]
